FAERS Safety Report 24721581 (Version 1)
Quarter: 2024Q4

REPORT INFORMATION
  Report Type: Spontaneous
  Country: US (occurrence: US)
  Receive Date: 20241211
  Receipt Date: 20241211
  Transmission Date: 20250114
  Serious: No
  Sender: MERCK
  Company Number: US-009507513-2412USA002793

PATIENT
  Age: 12 Year
  Sex: Male

DRUGS (1)
  1. CUBICIN [Suspect]
     Active Substance: DAPTOMYCIN
     Indication: Cellulitis staphylococcal
     Dosage: DAY 4

REACTIONS (2)
  - Product use in unapproved indication [Unknown]
  - Product use issue [Unknown]
